FAERS Safety Report 4772169-0 (Version None)
Quarter: 2005Q3

REPORT INFORMATION
  Report Type: 
  Country: None (occurrence: None)
  Receive Date: 20050919
  Receipt Date: 20040923
  Transmission Date: 20060218
  Serious: Yes (Life-Threatening)
  Sender: FDA-Public Use
  Company Number: US-BRISTOL-MYERS SQUIBB COMPANY-12711230

PATIENT
  Age: 81 Year
  Sex: Male
  Weight: 86 kg

DRUGS (1)
  1. DEFINITY [Suspect]
     Indication: ULTRASOUND SCAN
     Dosage: DILUTED BOLUS FOLLOWING HEPLOCK INSERTION
     Route: 040
     Dates: start: 20040921

REACTIONS (2)
  - ABDOMINAL DISTENSION [None]
  - CARDIO-RESPIRATORY ARREST [None]
